FAERS Safety Report 7375690-4 (Version None)
Quarter: 2011Q1

REPORT INFORMATION
  Report Type: 
  Country: None (occurrence: None)
  Receive Date: 20110325
  Receipt Date: 20110311
  Transmission Date: 20110831
  Serious: Yes (Hospitalization)
  Sender: FDA-Public Use
  Company Number: IT-BAYER-2011-022234

PATIENT
  Sex: Male

DRUGS (2)
  1. BIFRIL [Suspect]
     Indication: ESSENTIAL HYPERTENSION
     Dosage: 30 MG, QD
     Route: 048
     Dates: start: 20101205
  2. ASPIRIN [Suspect]
     Indication: ANTICOAGULANT THERAPY
     Dosage: DAILY DOSE 100 MG
     Route: 048
     Dates: start: 20100905

REACTIONS (1)
  - DIZZINESS [None]
